FAERS Safety Report 16628920 (Version 1)
Quarter: 2019Q3

REPORT INFORMATION
  Report Type: Spontaneous
  Country: FR (occurrence: FR)
  Receive Date: 20190725
  Receipt Date: 20190725
  Transmission Date: 20191004
  Serious: Yes (Other)
  Sender: FDA-Public Use
  Company Number: FR-MYLANLABS-2019M1068600

PATIENT
  Sex: Male

DRUGS (1)
  1. CASPOFUNGIN [Suspect]
     Active Substance: CASPOFUNGIN
     Indication: SYSTEMIC CANDIDA
     Dosage: 7 DAYS
     Route: 065
     Dates: start: 20190114, end: 20190121

REACTIONS (4)
  - Pneumonia bacterial [Recovering/Resolving]
  - Pneumonia pneumococcal [Recovering/Resolving]
  - Systemic candida [Recovering/Resolving]
  - Septic shock [Recovering/Resolving]

NARRATIVE: CASE EVENT DATE: 20190109
